FAERS Safety Report 7540757-4 (Version None)
Quarter: 2011Q2

REPORT INFORMATION
  Report Type: 
  Country: None (occurrence: None)
  Receive Date: 20110603
  Receipt Date: 20110523
  Transmission Date: 20111010
  Serious: Yes (Hospitalization)
  Sender: FDA-Public Use
  Company Number: LTI2011A00111

PATIENT
  Age: 71 Year
  Sex: Male

DRUGS (9)
  1. ACTOS [Suspect]
     Indication: TYPE 2 DIABETES MELLITUS
     Dosage: 30 MG (30 MG 1 IN 1 D)
     Route: 048
     Dates: start: 20030101, end: 20110301
  2. NAFTIDROFURYL (NAFTIDROFURYL) [Concomitant]
  3. LASIX [Concomitant]
  4. DIAMICRON (GLICLAZIDE) [Concomitant]
  5. GLUCOPHAGE [Concomitant]
  6. ASPIRIN [Concomitant]
  7. DIGOXIN [Concomitant]
  8. CIPRALAN [Concomitant]
  9. CRESTOR [Concomitant]

REACTIONS (5)
  - HAEMATURIA [None]
  - ESCHERICHIA URINARY TRACT INFECTION [None]
  - BENIGN PROSTATIC HYPERPLASIA [None]
  - BLADDER TRANSITIONAL CELL CARCINOMA [None]
  - NEPHROLITHIASIS [None]
